FAERS Safety Report 7071022-X (Version None)
Quarter: 2010Q4

REPORT INFORMATION
  Report Type: 
  Country: None (occurrence: None)
  Receive Date: 20101029
  Receipt Date: 20101019
  Transmission Date: 20110411
  Serious: No
  Sender: FDA-Public Use
  Company Number: US-PFIZER INC-2010132972

PATIENT
  Sex: Female
  Weight: 62.585 kg

DRUGS (3)
  1. SERTRALINE HYDROCHLORIDE [Suspect]
     Indication: DEPRESSION
     Dosage: 25 MG, DAILY
     Route: 048
     Dates: start: 20101001
  2. BENICAR [Concomitant]
     Indication: HYPERTENSION
     Dosage: UNK
     Route: 048
  3. ALLEGRA D 24 HOUR [Concomitant]
     Indication: HYPERSENSITIVITY
     Dosage: UNK
     Route: 048

REACTIONS (2)
  - FLATULENCE [None]
  - GASTROINTESTINAL DISORDER [None]
